FAERS Safety Report 7865722-9 (Version None)
Quarter: 2011Q4

REPORT INFORMATION
  Report Type: 
  Country: None (occurrence: None)
  Receive Date: 20111028
  Receipt Date: 20110214
  Transmission Date: 20120403
  Serious: No
  Sender: FDA-Public Use
  Company Number: US-GLAXOSMITHKLINE-A0913433A

PATIENT
  Age: 62 Year
  Sex: Male

DRUGS (8)
  1. COMBIVENT [Concomitant]
  2. DIGOXIN [Concomitant]
  3. WARFARIN SODIUM [Concomitant]
  4. LISINOPRIL [Concomitant]
  5. POTASSIUM [Concomitant]
  6. CARVEDILOL [Concomitant]
  7. FUROSEMIDE [Concomitant]
  8. ADVAIR DISKUS 100/50 [Suspect]
     Indication: CHRONIC OBSTRUCTIVE PULMONARY DISEASE
     Dosage: 1PUFF TWICE PER DAY
     Route: 055
     Dates: start: 20100401, end: 20100501

REACTIONS (1)
  - DRUG INEFFECTIVE [None]
